FAERS Safety Report 16003117 (Version 4)
Quarter: 2020Q4

REPORT INFORMATION
  Report Type: Spontaneous
  Country: US (occurrence: US)
  Receive Date: 20190225
  Receipt Date: 20201110
  Transmission Date: 20210113
  Serious: No
  Sender: FDA-Public Use
  Company Number: US-SA-2019SA049952

PATIENT

DRUGS (4)
  1. METFORMIN [Concomitant]
     Active Substance: METFORMIN HYDROCHLORIDE
  2. TRULICITY [Concomitant]
     Active Substance: DULAGLUTIDE
  3. LANTUS [Suspect]
     Active Substance: INSULIN GLARGINE
     Dosage: 30 IU ONCE DAILY
     Route: 065
  4. LANTUS [Suspect]
     Active Substance: INSULIN GLARGINE
     Indication: TYPE 2 DIABETES MELLITUS
     Dosage: 20 IU, HS
     Route: 065

REACTIONS (1)
  - Product use complaint [Unknown]
